FAERS Safety Report 6014844-6 (Version None)
Quarter: 2008Q4

REPORT INFORMATION
  Report Type: 
  Country: None (occurrence: None)
  Receive Date: 20081219
  Receipt Date: 20081208
  Transmission Date: 20090506
  Serious: Yes (Death, Hospitalization)
  Sender: FDA-Public Use
  Company Number: DE-PFIZER INC-2008151156

PATIENT

DRUGS (3)
  1. CARDULAR [Suspect]
     Dosage: 4 MG, 1X/DAY
     Route: 048
     Dates: start: 20000101, end: 20080914
  2. RAMIPRIL [Suspect]
     Indication: HYPERTENSION
     Dosage: 5 MG, 2X/DAY
     Route: 048
     Dates: start: 20040101, end: 20080914
  3. MAGNESIUM [Concomitant]
     Dosage: 2X1 TABLET DAILY
     Dates: start: 20000101

REACTIONS (2)
  - DEATH [None]
  - PANCREATITIS ACUTE [None]
